FAERS Safety Report 18435869 (Version 2)
Quarter: 2021Q1

REPORT INFORMATION
  Report Type: Spontaneous
  Country: JP (occurrence: JP)
  Receive Date: 20201028
  Receipt Date: 20210114
  Transmission Date: 20210419
  Serious: Yes (Hospitalization, Other)
  Sender: FDA-Public Use
  Company Number: JP-ASTELLAS-2020JP012851

PATIENT
  Age: 9 Year
  Sex: Male

DRUGS (4)
  1. IDARUBICIN HYDROCHLORIDE. [Suspect]
     Active Substance: IDARUBICIN HYDROCHLORIDE
     Indication: PRODUCT USED FOR UNKNOWN INDICATION
     Dosage: UNK UNK, UNKNOWN FREQ.
     Route: 065
  2. CYTARABINE. [Suspect]
     Active Substance: CYTARABINE
     Indication: PRODUCT USED FOR UNKNOWN INDICATION
     Dosage: UNK UNK, UNKNOWN FREQ.
     Route: 065
  3. XOSPATA [Suspect]
     Active Substance: GILTERITINIB
     Indication: ACUTE MYELOID LEUKAEMIA RECURRENT
     Route: 048
     Dates: start: 20201006
  4. FLUDARABINE PHOSPHATE. [Suspect]
     Active Substance: FLUDARABINE PHOSPHATE
     Indication: PRODUCT USED FOR UNKNOWN INDICATION
     Dosage: UNK UNK, UNKNOWN FREQ.
     Route: 065

REACTIONS (4)
  - Klebsiella infection [Recovered/Resolved]
  - Off label use [Unknown]
  - Product administered to patient of inappropriate age [Unknown]
  - Myelosuppression [Recovering/Resolving]

NARRATIVE: CASE EVENT DATE: 20201006
